FAERS Safety Report 6976063-6 (Version None)
Quarter: 2010Q3

REPORT INFORMATION
  Report Type: 
  Country: None (occurrence: None)
  Receive Date: 20100910
  Receipt Date: 20090413
  Transmission Date: 20110219
  Serious: No
  Sender: FDA-Public Use
  Company Number: US-WYE-H08947409

PATIENT

DRUGS (2)
  1. PRISTIQ [Suspect]
     Dosage: UNKNOWN
  2. EFFEXOR XR [Suspect]
     Dosage: UNKNWON

REACTIONS (1)
  - DRUG INEFFECTIVE [None]
